FAERS Safety Report 6359106-2 (Version None)
Quarter: 2009Q3

REPORT INFORMATION
  Report Type: 
  Country: None (occurrence: None)
  Receive Date: 20090917
  Receipt Date: 20090903
  Transmission Date: 20100115
  Serious: Yes (Hospitalization)
  Sender: FDA-Public Use
  Company Number: DE-RANBAXY-2009RR-27975

PATIENT
  Age: 69 Year
  Sex: Male
  Weight: 71.9 kg

DRUGS (1)
  1. SIMVASTATIN [Suspect]
     Indication: HYPERCHOLESTEROLAEMIA
     Route: 048

REACTIONS (3)
  - CRUSH SYNDROME [None]
  - HAEMODIALYSIS [None]
  - RHABDOMYOLYSIS [None]
